FAERS Safety Report 23657183 (Version 1)
Quarter: 2024Q1

REPORT INFORMATION
  Report Type: Spontaneous
  Country: RO (occurrence: RO)
  Receive Date: 20240321
  Receipt Date: 20240321
  Transmission Date: 20240409
  Serious: Yes (Other)
  Sender: FDA-Public Use
  Company Number: RO-ROCHE-3523440

PATIENT
  Age: 69 Year
  Sex: Female

DRUGS (7)
  1. RITUXIMAB [Suspect]
     Active Substance: RITUXIMAB
     Dosage: UNK
  2. VINCRISTINE [Suspect]
     Active Substance: VINCRISTINE
     Dosage: UNK
  3. POLIVY [Suspect]
     Active Substance: POLATUZUMAB VEDOTIN-PIIQ
     Dosage: UNK
  4. CYCLOPHOSPHAMIDE [Suspect]
     Active Substance: CYCLOPHOSPHAMIDE
     Dosage: UNK
  5. BENDAMUSTINE [Suspect]
     Active Substance: BENDAMUSTINE
     Dosage: UNK
  6. PREDNISONE [Suspect]
     Active Substance: PREDNISONE
     Indication: Product used for unknown indication
     Dosage: UNK
  7. DOXORUBICIN [Suspect]
     Active Substance: DOXORUBICIN
     Dosage: UNK

REACTIONS (1)
  - Diffuse large B-cell lymphoma recurrent [Unknown]
